FAERS Safety Report 15329957 (Version 1)
Quarter: 2018Q3

REPORT INFORMATION
  Report Type: Report from Study
  Country: US (occurrence: US)
  Receive Date: 20180829
  Receipt Date: 20180829
  Transmission Date: 20181010
  Serious: No
  Sender: FDA-Public Use
  Company Number: PHEH2018US035172

PATIENT
  Sex: Female
  Weight: 98.87 kg

DRUGS (1)
  1. COSENTYX [Suspect]
     Active Substance: SECUKINUMAB
     Indication: PSORIATIC ARTHROPATHY
     Dosage: 150 MG, UNK (INJECT 150MG (1 PEN) SUBCUTANEOUSLY AT DAY 28 (DOSE 5) THEN EVERY 4 WEEKS AS DIRECTED)
     Route: 058
     Dates: start: 201804

REACTIONS (1)
  - Nasopharyngitis [Unknown]
